FAERS Safety Report 24463172 (Version 1)
Quarter: 2024Q4

REPORT INFORMATION
  Report Type: Report from Study
  Country: US (occurrence: US)
  Receive Date: 20241018
  Receipt Date: 20241018
  Transmission Date: 20250115
  Serious: No
  Sender: ROCHE
  Company Number: US-ROCHE-2910672

PATIENT
  Age: 64 Year
  Sex: Female
  Weight: 72.7 kg

DRUGS (5)
  1. XOLAIR [Suspect]
     Active Substance: OMALIZUMAB
     Indication: Asthma
     Dosage: ON 02/SEP/2021, SHE RECEIVED THE MOST RECENT DOSE OF OMALIZUMAB.
     Route: 058
  2. XOLAIR [Suspect]
     Active Substance: OMALIZUMAB
  3. BREO ELLIPTA [Concomitant]
     Active Substance: FLUTICASONE FUROATE\VILANTEROL TRIFENATATE
  4. MOMETASONE [Concomitant]
     Active Substance: MOMETASONE
  5. AZELASTINE [Concomitant]
     Active Substance: AZELASTINE

REACTIONS (2)
  - Off label use [Unknown]
  - No adverse event [Unknown]
